FAERS Safety Report 6253257-9 (Version None)
Quarter: 2009Q3

REPORT INFORMATION
  Report Type: 
  Country: None (occurrence: None)
  Receive Date: 20090701
  Receipt Date: 20090625
  Transmission Date: 20100115
  Serious: Yes (Other)
  Sender: FDA-Public Use
  Company Number: JP-AVENTIS-200911798JP

PATIENT
  Age: 84 Year
  Sex: Female
  Weight: 48 kg

DRUGS (2)
  1. ENOXAPARIN SODIUM [Suspect]
     Indication: ORTHOPEDIC PROCEDURE
     Route: 058
     Dates: start: 20090120, end: 20090125
  2. ENOXAPARIN SODIUM [Suspect]
     Route: 058
     Dates: start: 20090126, end: 20090202

REACTIONS (2)
  - FIBRIN D DIMER INCREASED [None]
  - HAEMATOMA [None]
